FAERS Safety Report 13281964 (Version 1)
Quarter: 2017Q1

REPORT INFORMATION
  Report Type: Spontaneous
  Country: US (occurrence: US)
  Receive Date: 20170301
  Receipt Date: 20170301
  Transmission Date: 20170428
  Serious: No
  Sender: FDA-Public Use
  Company Number: US-FERRINGPH-2016FE05351

PATIENT
  Age: 47 Year
  Sex: Male

DRUGS (1)
  1. STIMATE [Suspect]
     Active Substance: DESMOPRESSIN ACETATE
     Indication: VON WILLEBRAND^S DISEASE
     Dosage: 1.5 MG, AS NEEDED
     Route: 045

REACTIONS (4)
  - Epistaxis [Unknown]
  - Dizziness [Unknown]
  - Headache [Unknown]
  - Confusional state [Unknown]

NARRATIVE: CASE EVENT DATE: 20160927
